FAERS Safety Report 7605951-2 (Version None)
Quarter: 2011Q3

REPORT INFORMATION
  Report Type: 
  Country: None (occurrence: None)
  Receive Date: 20110713
  Receipt Date: 20110629
  Transmission Date: 20111222
  Serious: Yes (Other)
  Sender: FDA-Public Use
  Company Number: PHHY2011BR52836

PATIENT
  Sex: Female

DRUGS (3)
  1. EXFORGE [Suspect]
     Indication: HYPERTENSION
     Dosage: 1 DF, DAILY
     Route: 048
  2. ATENOLOL [Concomitant]
  3. DIOVAN [Suspect]
     Indication: HYPERTENSION
     Dosage: 1 DF, DAILY
     Route: 048

REACTIONS (7)
  - DIABETES MELLITUS [None]
  - HYPERGLYCAEMIA [None]
  - HYPERTENSION [None]
  - FATIGUE [None]
  - BRONCHITIS [None]
  - DYSPNOEA [None]
  - OEDEMA PERIPHERAL [None]
